FAERS Safety Report 4388605-8 (Version None)
Quarter: 2004Q2

REPORT INFORMATION
  Report Type: 
  Country: None (occurrence: None)
  Receive Date: 20040624
  Receipt Date: 20040615
  Transmission Date: 20050107
  Serious: Yes (Hospitalization, Other)
  Sender: FDA-Public Use
  Company Number: 2004034523

PATIENT
  Age: 70 Year
  Sex: Male

DRUGS (7)
  1. VIAGRA [Suspect]
     Indication: ILL-DEFINED DISORDER
     Dosage: ORAL
     Route: 048
     Dates: start: 20030101
  2. NIFEDIPINE [Concomitant]
  3. MECOBALAMIN (MECOBALAMIN) [Concomitant]
  4. BROMHEXINE HYDROCHLORIDE (BROMHEXINE HYDROCHLORIDE) [Concomitant]
  5. AMBROXOL HYDROCHLORIDE (AMBROXOL HYDROCHLORIDE) [Concomitant]
  6. PRAVASTATIN [Concomitant]
  7. SHOUSAIKOTOU (HERBAL EXTRACTS NOS) [Concomitant]

REACTIONS (3)
  - DYSPNOEA [None]
  - NEOPLASM [None]
  - PULMONARY EMBOLISM [None]
